FAERS Safety Report 13117179 (Version 1)
Quarter: 2017Q1

REPORT INFORMATION
  Report Type: Spontaneous
  Country: CN (occurrence: CN)
  Receive Date: 20170116
  Receipt Date: 20170116
  Transmission Date: 20170428
  Serious: Yes (Other)
  Sender: FDA-Public Use
  Company Number: CN-PFIZER INC-2017009244

PATIENT
  Age: 60 Year
  Sex: Male
  Weight: 59 kg

DRUGS (5)
  1. VENTOLIN [Interacting]
     Active Substance: ALBUTEROL SULFATE
     Indication: BRONCHITIS
     Dosage: 100 UG, 1X/DAY
     Route: 045
     Dates: start: 20161113, end: 20161113
  2. SODIUM CHLORIDE. [Concomitant]
     Active Substance: SODIUM CHLORIDE
     Dosage: 100 ML, 2X/DAY
     Route: 041
     Dates: start: 20161113, end: 20161113
  3. METHYLPREDNISOLONE SODIUM SUCCINATE. [Suspect]
     Active Substance: METHYLPREDNISOLONE SODIUM SUCCINATE
     Indication: BRONCHITIS
     Dosage: 80 MG, 2X/DAY
     Route: 041
     Dates: start: 20161113, end: 20161113
  4. LATAMOXEF SODIUM [Concomitant]
     Indication: BRONCHITIS
     Dosage: 2 G, 2X/DAY
     Route: 041
     Dates: start: 20161113, end: 20161116
  5. SODIUM CHLORIDE. [Concomitant]
     Active Substance: SODIUM CHLORIDE
     Indication: VEHICLE SOLUTION USE
     Dosage: 100 ML, 2X/DAY
     Route: 041
     Dates: start: 20161113, end: 20161116

REACTIONS (2)
  - Blood pressure increased [Recovering/Resolving]
  - Drug interaction [Recovering/Resolving]

NARRATIVE: CASE EVENT DATE: 20161113
